FAERS Safety Report 9523205 (Version 1)
Quarter: 2013Q3

REPORT INFORMATION
  Report Type: Spontaneous
  Country: IT (occurrence: IT)
  Receive Date: 20130913
  Receipt Date: 20130913
  Transmission Date: 20140515
  Serious: Yes (Other)
  Sender: FDA-Public Use
  Company Number: IT-GLAXOSMITHKLINE-B0922427A

PATIENT
  Age: 73 Year
  Sex: Male

DRUGS (4)
  1. AVODART [Suspect]
     Indication: BENIGN PROSTATIC HYPERPLASIA
     Dosage: .5MG PER DAY
     Route: 048
     Dates: start: 20130410, end: 20130506
  2. UNKNOWN DRUG [Concomitant]
  3. MODURETIC [Concomitant]
  4. SIMVASTATIN [Concomitant]

REACTIONS (1)
  - Hypertensive crisis [Recovered/Resolved]
